FAERS Safety Report 4434646-1 (Version None)
Quarter: 2004Q3

REPORT INFORMATION
  Report Type: 
  Country: None (occurrence: None)
  Receive Date: 20040827
  Receipt Date: 20031121
  Transmission Date: 20050211
  Serious: Yes (Hospitalization, Other)
  Sender: FDA-Public Use
  Company Number: US-MERCK-0311USA02538

PATIENT
  Age: 55 Year
  Sex: Female
  Weight: 75 kg

DRUGS (4)
  1. VICODIN [Concomitant]
     Route: 065
     Dates: start: 19910101
  2. ESTROGENS (UNSPECIFIED) [Concomitant]
     Route: 065
     Dates: start: 19840101, end: 20010101
  3. VIOXX [Suspect]
     Indication: FIBROMYALGIA
     Route: 048
     Dates: start: 20010704, end: 20010707
  4. EFFEXOR [Concomitant]
     Route: 065
     Dates: start: 19960101

REACTIONS (5)
  - ANGINA PECTORIS [None]
  - ANXIETY [None]
  - HYPERTENSION [None]
  - MYOCARDIAL INFARCTION [None]
  - STRESS SYMPTOMS [None]
